FAERS Safety Report 12199108 (Version 1)
Quarter: 2016Q1

REPORT INFORMATION
  Report Type: Spontaneous
  Country: US (occurrence: US)
  Receive Date: 20160322
  Receipt Date: 20160322
  Transmission Date: 20160526
  Serious: Yes (Other)
  Sender: FDA-Public Use
  Company Number: US-ACORDA-ACO_121998_2016

PATIENT
  Age: 69 Year
  Sex: Female

DRUGS (1)
  1. AMPYRA [Suspect]
     Active Substance: DALFAMPRIDINE
     Indication: PRODUCT USED FOR UNKNOWN INDICATION
     Dosage: UNK
     Route: 065

REACTIONS (7)
  - Visual impairment [Unknown]
  - Therapy cessation [Unknown]
  - Gait disturbance [Unknown]
  - Asthenia [Unknown]
  - Mobility decreased [Unknown]
  - Diabetes mellitus [Unknown]
  - Fall [Unknown]
